FAERS Safety Report 4525847-2 (Version None)
Quarter: 2004Q4

REPORT INFORMATION
  Report Type: 
  Country: None (occurrence: None)
  Receive Date: 20041213
  Receipt Date: 20020411
  Transmission Date: 20050328
  Serious: Yes (Life-Threatening, Hospitalization)
  Sender: FDA-Public Use
  Company Number: US-MERCK-0204USA01392

PATIENT
  Age: 48 Year
  Sex: Male

DRUGS (2)
  1. VIOXX [Suspect]
     Indication: ARTHRALGIA
     Route: 048
     Dates: start: 19990101, end: 20020301
  2. VIOXX [Suspect]
     Route: 048
     Dates: start: 20020101, end: 20040930

REACTIONS (1)
  - ACUTE MYOCARDIAL INFARCTION [None]
